FAERS Safety Report 8242146-6 (Version None)
Quarter: 2012Q1

REPORT INFORMATION
  Report Type: 
  Country: None (occurrence: None)
  Receive Date: 20120314
  Receipt Date: 20110630
  Transmission Date: 20120608
  Serious: No
  Sender: FDA-Public Use
  Company Number: PHHY2011US58732

PATIENT
  Sex: Male

DRUGS (1)
  1. FANAPT [Suspect]
     Indication: SCHIZOPHRENIA
     Dosage: 6 MG, BID
     Route: 048
     Dates: start: 20110627, end: 20110629

REACTIONS (1)
  - BLOOD GLUCOSE INCREASED [None]
